FAERS Safety Report 9855275 (Version 4)
Quarter: 2014Q1

REPORT INFORMATION
  Report Type: Spontaneous
  Country: US (occurrence: US)
  Receive Date: 20140130
  Receipt Date: 20140227
  Transmission Date: 20141002
  Serious: Yes (Hospitalization)
  Sender: FDA-Public Use
  Company Number: US-JNJFOC-20140115179

PATIENT
  Sex: Male
  Weight: 122.47 kg

DRUGS (4)
  1. ULTRAM [Suspect]
     Indication: PAIN
     Route: 048
  2. NUCYNTA [Suspect]
     Indication: PAIN
     Route: 048
     Dates: start: 2013
  3. DURAGESIC [Suspect]
     Indication: PAIN
     Route: 062
     Dates: start: 2004
  4. DURAGESIC [Suspect]
     Indication: PAIN
     Route: 062

REACTIONS (4)
  - Spinal fusion surgery [Unknown]
  - Back disorder [Unknown]
  - Pain [Unknown]
  - Product packaging quantity issue [Unknown]
